FAERS Safety Report 7797095-4 (Version None)
Quarter: 2011Q4

REPORT INFORMATION
  Report Type: 
  Country: None (occurrence: None)
  Receive Date: 20111005
  Receipt Date: 20110923
  Transmission Date: 20120403
  Serious: Yes (Hospitalization)
  Sender: FDA-Public Use
  Company Number: FR-SANOFI-AVENTIS-2011SA034215

PATIENT
  Age: 59 Year
  Sex: Male

DRUGS (17)
  1. VALIUM [Concomitant]
  2. CLONAZEPAM [Concomitant]
     Indication: AGITATION
  3. FLUOROURACIL [Suspect]
     Dates: start: 20110411
  4. ACETAMINOPHEN [Concomitant]
  5. FLUOROURACIL [Suspect]
     Dates: start: 20110321
  6. ACETAMINOPHEN W/ CODEINE [Concomitant]
  7. CISPLATIN [Suspect]
     Indication: HYPOPHARYNGEAL CANCER
     Dates: start: 20110217, end: 20110218
  8. FLUOROURACIL [Suspect]
     Indication: HYPOPHARYNGEAL CANCER
     Dates: start: 20110217
  9. CISPLATIN [Suspect]
     Dates: start: 20110321, end: 20110321
  10. ATARAX [Concomitant]
  11. LOPERAMIDE HCL [Concomitant]
  12. TAXOTERE [Suspect]
     Indication: HYPOPHARYNGEAL CANCER
     Dates: start: 20110217, end: 20110217
  13. CISPLATIN [Suspect]
     Dates: start: 20110411, end: 20110412
  14. ASPIRIN [Concomitant]
  15. TAXOTERE [Suspect]
     Dates: start: 20110321, end: 20110321
  16. TAXOTERE [Suspect]
     Dates: start: 20110411, end: 20110411
  17. MORPHINE SULFATE [Concomitant]

REACTIONS (4)
  - APHASIA [None]
  - ENCEPHALOPATHY [None]
  - EPILEPSY [None]
  - CONFUSIONAL STATE [None]
